FAERS Safety Report 7922262 (Version 3)
Quarter: 2013Q3

REPORT INFORMATION
  Report Type: Spontaneous
  Country: US (occurrence: US)
  Receive Date: 20110429
  Receipt Date: 20130719
  Transmission Date: 20140515
  Serious: Yes (Hospitalization)
  Sender: FDA-Public Use
  Company Number: US-ASTRAZENECA-2011SE10442

PATIENT
  Age: 57 Year
  Sex: Female
  Weight: 68.9 kg

DRUGS (6)
  1. NEXIUM [Suspect]
     Indication: ULCER
     Route: 048
     Dates: start: 2010, end: 201305
  2. NEXIUM [Suspect]
     Indication: IRRITABLE BOWEL SYNDROME
     Route: 048
     Dates: start: 2010, end: 201305
  3. NEXIUM [Suspect]
     Indication: HIATUS HERNIA
     Route: 048
     Dates: start: 2010, end: 201305
  4. NEXIUM [Suspect]
     Indication: ULCER
     Route: 048
  5. NEXIUM [Suspect]
     Indication: IRRITABLE BOWEL SYNDROME
     Route: 048
  6. NEXIUM [Suspect]
     Indication: HIATUS HERNIA
     Route: 048

REACTIONS (8)
  - Atypical pneumonia [Unknown]
  - Dyspepsia [Unknown]
  - Adverse event [Unknown]
  - Malaise [Unknown]
  - Vomiting [Unknown]
  - Nausea [Unknown]
  - Drug dose omission [Unknown]
  - Inappropriate schedule of drug administration [Unknown]
